FAERS Safety Report 8989806 (Version 1)
Quarter: 2012Q4

REPORT INFORMATION
  Report Type: Report from Study
  Country: IL (occurrence: IL)
  Receive Date: 20121228
  Receipt Date: 20121228
  Transmission Date: 20130627
  Serious: Yes (Hospitalization, Other)
  Sender: FDA-Public Use
  Company Number: IL-ROCHE-1170227

PATIENT
  Sex: Male

DRUGS (5)
  1. RITUXIMAB [Suspect]
     Indication: CHRONIC LYMPHOCYTIC LEUKAEMIA
     Dosage: last dose prior to SAE on 26/Nov/2012
     Route: 042
     Dates: start: 20121126
  2. CYCLOPHOSPHAMIDE [Suspect]
     Indication: CHRONIC LYMPHOCYTIC LEUKAEMIA
     Dosage: last dose prior to SAE on 28/Nov/2012, Days 1-3 of each 28-day cycle
     Route: 042
     Dates: start: 20121126
  3. FLUDARABINE [Suspect]
     Indication: CHRONIC LYMPHOCYTIC LEUKAEMIA
     Dosage: last dose prior to SAE 28/Nov/2012, Days 1-3 of each 28-day cycle
     Route: 042
     Dates: start: 20121126
  4. RESLIN [Concomitant]
  5. FOSALAN [Concomitant]

REACTIONS (1)
  - Squamous cell carcinoma of skin [Recovered/Resolved]
